FAERS Safety Report 5760993-7 (Version None)
Quarter: 2008Q2

REPORT INFORMATION
  Report Type: 
  Country: None (occurrence: None)
  Receive Date: 20080606
  Receipt Date: 20080530
  Transmission Date: 20081010
  Serious: Yes (Other)
  Sender: FDA-Public Use
  Company Number: GB-ROCHE-567645

PATIENT
  Sex: Female
  Weight: 100 kg

DRUGS (3)
  1. ORLISTAT [Suspect]
     Indication: OBESITY
     Route: 048
     Dates: start: 20080225, end: 20080401
  2. METHADONE HCL [Concomitant]
     Indication: PAIN
     Route: 048
  3. CYCLIZINE [Concomitant]
     Indication: NAUSEA
     Route: 048

REACTIONS (1)
  - CHOLECYSTECTOMY [None]
